FAERS Safety Report 11113086 (Version 4)
Quarter: 2015Q3

REPORT INFORMATION
  Report Type: Spontaneous
  Country: IT (occurrence: IT)
  Receive Date: 20150514
  Receipt Date: 20150717
  Transmission Date: 20151125
  Serious: Yes (Life-Threatening, Hospitalization)
  Sender: FDA-Public Use
  Company Number: IT-PFIZER INC-2015161030

PATIENT
  Age: 48 Year
  Sex: Male

DRUGS (3)
  1. AZITHROMYCIN [Suspect]
     Active Substance: AZITHROMYCIN ANHYDROUS
     Indication: PYREXIA
     Dosage: 500 MG, DAILY
     Route: 048
     Dates: start: 20150115, end: 20150122
  2. AMOXICILLIN TRIHYDRATE [Suspect]
     Active Substance: AMOXICILLIN
     Indication: PYREXIA
     Dosage: 3 G, DAILY
     Route: 048
     Dates: start: 20150107, end: 20150114
  3. DEFLAZACORT [Suspect]
     Active Substance: DEFLAZACORT
     Dosage: 30 MG, DAILY
     Route: 048
     Dates: start: 20150123

REACTIONS (2)
  - Autoimmune hepatitis [Recovering/Resolving]
  - Hepatitis acute [Recovering/Resolving]

NARRATIVE: CASE EVENT DATE: 20150210
